FAERS Safety Report 13128777 (Version 4)
Quarter: 2020Q3

REPORT INFORMATION
  Report Type: Other
  Country: CA (occurrence: CA)
  Receive Date: 20170119
  Receipt Date: 20200907
  Transmission Date: 20201102
  Serious: Yes (Other)
  Sender: FDA-Public Use
  Company Number: CA-ROCHE-1231822

PATIENT
  Age: 47 Year
  Sex: Female
  Weight: 81.6 kg

DRUGS (10)
  1. SIMPONI [Concomitant]
     Active Substance: GOLIMUMAB
  2. ACTEMRA [Suspect]
     Active Substance: TOCILIZUMAB
     Indication: RHEUMATOID ARTHRITIS
     Route: 042
     Dates: start: 20130529, end: 2013
  3. ACTEMRA [Suspect]
     Active Substance: TOCILIZUMAB
     Dosage: 17/NOV/2016, 15/DEC/2016, 12/JAN/2017, 09/FEB/2017
     Route: 042
  4. CYMBALTA [Concomitant]
     Active Substance: DULOXETINE HYDROCHLORIDE
  5. METHOTREXATE. [Concomitant]
     Active Substance: METHOTREXATE
  6. ACTEMRA [Suspect]
     Active Substance: TOCILIZUMAB
     Route: 042
     Dates: start: 20170111
  7. FENTANYL. [Suspect]
     Active Substance: FENTANYL
     Indication: PRODUCT USED FOR UNKNOWN INDICATION
     Route: 062
     Dates: start: 20140811, end: 20140831
  8. LYRICA [Concomitant]
     Active Substance: PREGABALIN
  9. ACTEMRA [Suspect]
     Active Substance: TOCILIZUMAB
     Route: 042
     Dates: start: 20130627, end: 20161215
  10. ACTEMRA [Suspect]
     Active Substance: TOCILIZUMAB
     Route: 042
     Dates: start: 201305

REACTIONS (31)
  - Intervertebral disc protrusion [Unknown]
  - Fluid retention [Unknown]
  - Fatigue [Not Recovered/Not Resolved]
  - Blood test abnormal [Unknown]
  - Joint injury [Unknown]
  - Back pain [Not Recovered/Not Resolved]
  - Weight increased [Unknown]
  - Dyspnoea [Not Recovered/Not Resolved]
  - Asthenia [Not Recovered/Not Resolved]
  - Peripheral swelling [Not Recovered/Not Resolved]
  - Pulmonary mass [Unknown]
  - Back injury [Unknown]
  - Vomiting projectile [Recovered/Resolved]
  - Fall [Unknown]
  - Pain [Unknown]
  - Urticaria [Recovered/Resolved]
  - Fibromyalgia [Not Recovered/Not Resolved]
  - Joint swelling [Unknown]
  - Eye infection [Unknown]
  - Feeling cold [Not Recovered/Not Resolved]
  - Abdominal pain [Recovered/Resolved]
  - Weight decreased [Recovered/Resolved]
  - Cystitis [Unknown]
  - Blood cholesterol increased [Unknown]
  - Abdominal pain [Recovered/Resolved]
  - Rectal haemorrhage [Recovered/Resolved]
  - Mean cell haemoglobin increased [Unknown]
  - Tremor [Not Recovered/Not Resolved]
  - Alanine aminotransferase increased [Unknown]
  - Menopause [Unknown]
  - Diarrhoea [Recovered/Resolved]

NARRATIVE: CASE EVENT DATE: 20130529
